FAERS Safety Report 15378972 (Version 1)
Quarter: 2018Q3

REPORT INFORMATION
  Report Type: Spontaneous
  Country: FR (occurrence: FR)
  Receive Date: 20180913
  Receipt Date: 20180913
  Transmission Date: 20181010
  Serious: Yes (Hospitalization)
  Sender: FDA-Public Use
  Company Number: FR-SA-2018SA251024

PATIENT
  Age: 67 Year
  Sex: Female
  Weight: 72 kg

DRUGS (4)
  1. OKIMUS [Suspect]
     Active Substance: HAWTHORN LEAF WITH FLOWER\QUININE
     Indication: MUSCLE SPASMS
     Route: 048
     Dates: start: 20170621, end: 20170624
  2. ACETYLLEUCINE [Suspect]
     Active Substance: ACETYLLEUCINE
     Indication: VERTIGO
     Route: 048
     Dates: start: 20170621, end: 20170624
  3. COAPROVEL [Suspect]
     Active Substance: HYDROCHLOROTHIAZIDE\IRBESARTAN
     Indication: HYPERTENSION
     Route: 048
     Dates: start: 20170621, end: 20170625
  4. BETAHISTINE HYDROCHLORIDE [Suspect]
     Active Substance: BETAHISTINE HYDROCHLORIDE
     Indication: VERTIGO
     Route: 048
     Dates: start: 20170621, end: 20170624

REACTIONS (3)
  - Hyponatraemia [Recovered/Resolved]
  - Acute kidney injury [Recovered/Resolved]
  - Hypotension [Recovered/Resolved]

NARRATIVE: CASE EVENT DATE: 20170624
